FAERS Safety Report 8640392 (Version 3)
Quarter: 2012Q4

REPORT INFORMATION
  Report Type: 
  Country: US (occurrence: US)
  Receive Date: 20120628
  Receipt Date: 20121107
  Transmission Date: 20130627
  Serious: No
  Sender: FDA-Public Use
  Company Number: US-PFIZER INC-2012150890

PATIENT
  Age: 67 Year
  Sex: Female
  Weight: 109 kg

DRUGS (6)
  1. TOVIAZ [Suspect]
     Indication: BLADDER INCONTINENCE
     Dosage: 8 mg, daily
     Dates: start: 2011
  2. LIPITOR [Concomitant]
     Dosage: UNK, daily
  3. PAROXETINE HYDROCHLORIDE [Concomitant]
     Indication: STRESS
     Dosage: UNK, daily
  4. VITAMIN C [Concomitant]
     Indication: HYPOVITAMINOSIS
     Dosage: UNK, daily
  5. VITAMIN D [Concomitant]
     Indication: HYPOVITAMINOSIS
     Dosage: UNK, daily
  6. VITAMIN E [Concomitant]
     Indication: HYPOVITAMINOSIS
     Dosage: UNK, daily

REACTIONS (1)
  - Drug effect decreased [Unknown]
